FAERS Safety Report 21693733 (Version 6)
Quarter: 2023Q2

REPORT INFORMATION
  Report Type: Report from Study
  Country: AT (occurrence: AT)
  Receive Date: 20221207
  Receipt Date: 20230403
  Transmission Date: 20230722
  Serious: Yes (Hospitalization)
  Sender: FDA-Public Use
  Company Number: AT-002147023-NVSC2022AT281579

PATIENT
  Age: 55 Year
  Sex: Female
  Weight: 51.6 kg

DRUGS (11)
  1. ALPELISIB [Suspect]
     Active Substance: ALPELISIB
     Indication: Ovarian cancer
     Dosage: 200 MG, QD (DAILY)
     Route: 048
     Dates: start: 20221027, end: 20221115
  2. ALPELISIB [Suspect]
     Active Substance: ALPELISIB
     Dosage: 200 MG, ONCE/SINGLE
     Route: 048
     Dates: start: 20221202
  3. OLAPARIB [Suspect]
     Active Substance: OLAPARIB
     Indication: Ovarian cancer
     Dosage: 400 MG, BID
     Route: 048
     Dates: start: 20221027, end: 20221115
  4. ESOMEPRAZOLE [Concomitant]
     Active Substance: ESOMEPRAZOLE
     Indication: Gastritis prophylaxis
     Dosage: UNK
     Route: 065
     Dates: start: 20221112, end: 20221116
  5. LEVOCETIRIZIN ACTAVIS [Concomitant]
     Indication: Contrast media allergy
     Dosage: UNK
     Route: 065
     Dates: start: 202011
  6. DRONABINOL [Concomitant]
     Active Substance: DRONABINOL
     Indication: Nausea
     Dosage: UNK
     Route: 065
     Dates: start: 2021
  7. DULCOLAX NOS [Concomitant]
     Active Substance: BISACODYL OR DOCUSATE SODIUM
     Indication: Constipation
     Dosage: UNK
     Route: 065
     Dates: start: 202011
  8. GUTTALAX [Concomitant]
     Indication: Constipation
     Dosage: UNK
     Route: 065
     Dates: start: 202011
  9. POLYETHYLENE GLYCOL 3350\POTASSIUM CHLORIDE\SODIUM BICARBONATE\SODIUM [Concomitant]
     Active Substance: POLYETHYLENE GLYCOL 3350\POTASSIUM CHLORIDE\SODIUM BICARBONATE\SODIUM CHLORIDE
     Indication: Constipation
     Dosage: UNK
     Route: 065
     Dates: start: 202011
  10. VISCUM ALBUM FRUITING TOP [Concomitant]
     Active Substance: VISCUM ALBUM FRUITING TOP
     Indication: General physical condition
     Dosage: THERAPY
     Route: 065
     Dates: start: 202101
  11. ELOMEL [Concomitant]
     Indication: Vomiting
     Dosage: UNK
     Route: 065
     Dates: start: 20221110, end: 20221111

REACTIONS (1)
  - Dyspnoea [Not Recovered/Not Resolved]

NARRATIVE: CASE EVENT DATE: 20221201
